FAERS Safety Report 11580843 (Version 1)
Quarter: 2015Q4

REPORT INFORMATION
  Report Type: Report from Study
  Country: VE (occurrence: VE)
  Receive Date: 20151001
  Receipt Date: 20151001
  Transmission Date: 20160304
  Serious: Yes (Hospitalization)
  Sender: FDA-Public Use
  Company Number: PHHY2015VE117727

PATIENT
  Sex: Male

DRUGS (2)
  1. SANDOSTATIN LAR DEPOT [Suspect]
     Active Substance: OCTREOTIDE ACETATE
     Indication: SMALL INTESTINE CARCINOMA
     Dosage: 1 AMPOULE (20 MG), EVERY 28 DAYS
     Route: 058
     Dates: start: 201411
  2. SANDOSTATIN LAR DEPOT [Suspect]
     Active Substance: OCTREOTIDE ACETATE
     Dosage: 2 AMPOULES (20 MG), UNK
     Route: 058

REACTIONS (3)
  - General physical health deterioration [Recovering/Resolving]
  - Kidney infection [Recovering/Resolving]
  - Off label use [Unknown]
